FAERS Safety Report 20392071 (Version 2)
Quarter: 2022Q1

REPORT INFORMATION
  Report Type: Spontaneous
  Country: US (occurrence: US)
  Receive Date: 20220128
  Receipt Date: 20220208
  Transmission Date: 20220423
  Serious: Yes (Other)
  Sender: FDA-Public Use
  Company Number: US-PFIZER INC-202200148950

PATIENT
  Age: 73 Year
  Sex: Female
  Weight: 53.07 kg

DRUGS (4)
  1. IBRANCE [Suspect]
     Active Substance: PALBOCICLIB
     Indication: Breast cancer metastatic
     Dosage: 75 MG, 1X/DAY
  2. LETROZOLE [Suspect]
     Active Substance: LETROZOLE
     Dosage: UNK
  3. CALCIUM [Concomitant]
     Active Substance: CALCIUM
     Dosage: UNK
  4. PROBIOTIC [BIFIDOBACTERIUM BIFIDUM;BIFIDOBACTERIUM LACTIS;BIFIDOBACTER [Concomitant]
     Dosage: UNK, 2X/DAY

REACTIONS (6)
  - Oesophageal stenosis [Unknown]
  - Choking [Unknown]
  - Dysphagia [Not Recovered/Not Resolved]
  - Weight decreased [Unknown]
  - Back pain [Unknown]
  - Pain [Unknown]

NARRATIVE: CASE EVENT DATE: 20210701
